FAERS Safety Report 6292301-X (Version None)
Quarter: 2009Q3

REPORT INFORMATION
  Report Type: 
  Country: None (occurrence: None)
  Receive Date: 20090731
  Receipt Date: 20070605
  Transmission Date: 20100115
  Serious: Yes (Hospitalization)
  Sender: FDA-Public Use
  Company Number: US-ASTRAZENECA-2006UW07580

PATIENT
  Age: 42 Year
  Sex: Female
  Weight: 70.3 kg

DRUGS (18)
  1. SEROQUEL [Suspect]
     Indication: BIPOLAR DISORDER
     Dosage: 25 - 350 MG
     Route: 048
     Dates: start: 19980319
  2. ZYPREXA [Suspect]
  3. HALDOL [Concomitant]
     Dosage: 2-3 MG
     Dates: start: 19820101
  4. RISPERDAL [Concomitant]
     Dates: start: 19940101, end: 19950101
  5. RISPERDAL [Concomitant]
     Dosage: STRENGTH 0.5 MG, 1MG, 2.5 MG DAILY
  6. STELAZINE [Concomitant]
  7. THORAZINE [Concomitant]
     Dates: start: 19900101
  8. TRILAFON [Concomitant]
  9. LITHIUM CARBONATE [Concomitant]
     Dosage: STRENGTH 300 MG, 600MG  DOSE 600 MG - 1500 MG
  10. CLONAZEPAM [Concomitant]
     Dosage: 0.5 MG ONE OR TWO DAILY AS NEEDED
  11. TEGRETOL [Concomitant]
     Dosage: STRENGTH 200 MG, 300 MG, 400 MG.  DOSE 600 MG - 1600 MG
     Route: 048
  12. BENADRYL [Concomitant]
     Dosage: STRENGTH 25 MG, 50 MG  DOSE- 25 MG - 50 MG AT NIGHT AS REQUIRED
     Route: 048
  13. ZOLOFT [Concomitant]
  14. MELATONIN [Concomitant]
  15. TOPAMAX [Concomitant]
  16. VENLAFAXINE HYDROCHLORIDE [Concomitant]
  17. BUPROPION HCL [Concomitant]
  18. PHENDYDARN [Concomitant]

REACTIONS (2)
  - CARDIAC MURMUR [None]
  - HYPERGLYCAEMIA [None]
